FAERS Safety Report 21392254 (Version 3)
Quarter: 2022Q4

REPORT INFORMATION
  Report Type: Spontaneous
  Country: US (occurrence: US)
  Receive Date: 20220929
  Receipt Date: 20221011
  Transmission Date: 20230112
  Serious: Yes (Other)
  Sender: FDA-Public Use
  Company Number: US-SUNOVION-2022SUN002846AA

PATIENT
  Sex: Male

DRUGS (1)
  1. LATUDA [Suspect]
     Active Substance: LURASIDONE HYDROCHLORIDE
     Dosage: UNK
     Route: 048

REACTIONS (3)
  - Loss of control of legs [Unknown]
  - Drug effect less than expected [Unknown]
  - Fall [Unknown]
